FAERS Safety Report 11892803 (Version 1)
Quarter: 2016Q1

REPORT INFORMATION
  Report Type: Report from Study
  Country: US (occurrence: US)
  Receive Date: 20160106
  Receipt Date: 20160106
  Transmission Date: 20160526
  Serious: Yes (Hospitalization, Other)
  Sender: FDA-Public Use
  Company Number: US-MALLINCKRODT-T201505487

PATIENT
  Age: 42 Year
  Sex: Female

DRUGS (1)
  1. REPOSITORY CORTICOTROPIN INJECTION [Suspect]
     Active Substance: CORTICOTROPIN
     Indication: SYSTEMIC LUPUS ERYTHEMATOSUS
     Dosage: 80 UNITS TWICE WEEKLY
     Route: 058
     Dates: start: 20150825, end: 20151208

REACTIONS (12)
  - Gastroenteritis [Recovered/Resolved]
  - Pyrexia [Unknown]
  - Hypoaesthesia [Recovered/Resolved]
  - Abdominal pain [Recovered/Resolved]
  - Activities of daily living impaired [Recovered/Resolved]
  - Intentional product misuse [Not Recovered/Not Resolved]
  - Chills [Unknown]
  - Transplant dysfunction [Unknown]
  - Pain [Unknown]
  - Diarrhoea [Unknown]
  - Bacterial test positive [Unknown]
  - Drug dose omission [Recovered/Resolved]

NARRATIVE: CASE EVENT DATE: 2015
